FAERS Safety Report 24545144 (Version 1)
Quarter: 2024Q4

REPORT INFORMATION
  Report Type: Spontaneous
  Country: US (occurrence: None)
  Receive Date: 20241023
  Receipt Date: 20241023
  Transmission Date: 20250114
  Serious: Yes (Other)
  Sender: Public
  Company Number: None

PATIENT
  Age: 33 Week
  Sex: Female
  Weight: 72 kg

DRUGS (7)
  1. WEGOVY [Suspect]
     Active Substance: SEMAGLUTIDE
     Indication: Weight decreased
     Dosage: OTHER ROUTE : SHOT INTO MUSCLE;?
     Route: 050
  2. Tianazidan [Concomitant]
  3. Dilauded [Concomitant]
  4. CYMBALTA [Concomitant]
     Active Substance: DULOXETINE HYDROCHLORIDE
  5. ZOFRAN [Concomitant]
     Active Substance: ONDANSETRON HYDROCHLORIDE
  6. KLONOPIN [Concomitant]
     Active Substance: CLONAZEPAM
  7. IRON [Concomitant]
     Active Substance: IRON

REACTIONS (3)
  - Oropharyngeal pain [None]
  - Odynophagia [None]
  - Musculoskeletal chest pain [None]

NARRATIVE: CASE EVENT DATE: 20241010
